FAERS Safety Report 26198419 (Version 1)
Quarter: 2025Q4

REPORT INFORMATION
  Report Type: Spontaneous
  Country: US (occurrence: US)
  Receive Date: 20251224
  Receipt Date: 20251224
  Transmission Date: 20260117
  Serious: No
  Sender: TEVA
  Company Number: US-TEVA-VS-3400941

PATIENT
  Age: 60 Year
  Sex: Female

DRUGS (1)
  1. MESALAMINE [Suspect]
     Active Substance: MESALAMINE
     Indication: Product used for unknown indication
     Dosage: ORAL DELAYED RELEASE
     Route: 048

REACTIONS (2)
  - Exposure to allergen [Unknown]
  - Nasopharyngitis [Not Recovered/Not Resolved]
